FAERS Safety Report 8289051-7 (Version None)
Quarter: 2012Q2

REPORT INFORMATION
  Report Type: 
  Country: None (occurrence: None)
  Receive Date: 20120412
  Receipt Date: 20120328
  Transmission Date: 20120825
  Serious: Yes (Hospitalization, Other)
  Sender: FDA-Public Use
  Company Number: 2012P1011410

PATIENT
  Age: 63 Year
  Sex: Male
  Weight: 106.5953 kg

DRUGS (13)
  1. ASPIRIN [Concomitant]
  2. METOPROLOL TARTRATE [Concomitant]
  3. PRESCRIPTION POTASSIUM SUPPLEMENT [Concomitant]
  4. SYNTHROID [Concomitant]
  5. PREVACID [Concomitant]
  6. OXYCONTIN [Concomitant]
  7. LASIX [Concomitant]
  8. VITAMIN B COMPLEX CAP [Concomitant]
  9. ZOCOR [Concomitant]
  10. MULTI-VITAMIN [Concomitant]
  11. CARBAMAZEPINE [Suspect]
     Indication: CONVULSION
     Dosage: 400 MG; BID
  12. ZONISAMIDE [Concomitant]
  13. LYRICA [Concomitant]

REACTIONS (2)
  - CONVULSION [None]
  - NERVOUSNESS [None]
